FAERS Safety Report 15840753 (Version 3)
Quarter: 2019Q1

REPORT INFORMATION
  Report Type: Spontaneous
  Country: US (occurrence: US)
  Receive Date: 20190118
  Receipt Date: 20190211
  Transmission Date: 20190417
  Serious: No
  Sender: FDA-Public Use
  Company Number: US-AMGEN-USASP2019005704

PATIENT
  Age: 67 Year
  Sex: Female
  Weight: 50.79 kg

DRUGS (1)
  1. PROLIA [Suspect]
     Active Substance: DENOSUMAB
     Indication: OSTEOPOROSIS POSTMENOPAUSAL
     Dosage: 60 MG, Q6MO
     Route: 065
     Dates: start: 201810

REACTIONS (14)
  - Hair texture abnormal [Unknown]
  - Disorientation [Unknown]
  - Toothache [Unknown]
  - Balance disorder [Unknown]
  - Fatigue [Unknown]
  - Alopecia [Unknown]
  - Joint dislocation [Unknown]
  - Pain in extremity [Unknown]
  - Memory impairment [Unknown]
  - Feeling abnormal [Unknown]
  - Arthralgia [Unknown]
  - Hot flush [Unknown]
  - Pain in jaw [Unknown]
  - Myalgia [Unknown]

NARRATIVE: CASE EVENT DATE: 2018
